FAERS Safety Report 9118054 (Version 1)
Quarter: 2013Q1

REPORT INFORMATION
  Report Type: Report from Study
  Country: US (occurrence: US)
  Receive Date: 20130129
  Receipt Date: 20130129
  Transmission Date: 20140127
  Serious: Yes (Hospitalization)
  Sender: FDA-Public Use
  Company Number: US-ABBOTT-12P-163-0941938-00

PATIENT
  Age: 41 Year
  Sex: Female

DRUGS (6)
  1. HUMIRA 40 MG/0.8 ML PEN [Suspect]
     Indication: PSORIATIC ARTHROPATHY
     Dates: start: 201106, end: 201112
  2. HUMIRA 40 MG/0.8 ML PEN [Suspect]
     Dates: start: 20120315, end: 201204
  3. HUMIRA 40 MG/0.8 ML PEN [Suspect]
     Dates: start: 201205, end: 201205
  4. ZOLOFT [Concomitant]
     Indication: PRODUCT USED FOR UNKNOWN INDICATION
     Dosage: IN MORNING
  5. NORTRIPTYLINE [Concomitant]
     Indication: PRODUCT USED FOR UNKNOWN INDICATION
     Dosage: AT BEDTIME
     Route: 048
  6. ATENOLOL [Concomitant]
     Indication: PRODUCT USED FOR UNKNOWN INDICATION
     Dosage: AT BEDTIME

REACTIONS (14)
  - Abdominal pain [Recovered/Resolved]
  - Back pain [Recovering/Resolving]
  - Upper respiratory tract infection [Recovering/Resolving]
  - Rhonchi [Recovering/Resolving]
  - Oropharyngeal pain [Recovering/Resolving]
  - Productive cough [Recovering/Resolving]
  - Bronchitis [Unknown]
  - Dyspnoea [Unknown]
  - Chest discomfort [Unknown]
  - Yawning [Unknown]
  - Increased upper airway secretion [Recovering/Resolving]
  - Dyspnoea [Recovering/Resolving]
  - Respiratory tract congestion [Recovering/Resolving]
  - Painful respiration [Recovering/Resolving]
